FAERS Safety Report 9881063 (Version 2)
Quarter: 2014Q1

REPORT INFORMATION
  Report Type: Spontaneous
  Country: JP (occurrence: JP)
  Receive Date: 20140207
  Receipt Date: 20140311
  Transmission Date: 20141002
  Serious: Yes (Death)
  Sender: FDA-Public Use
  Company Number: JP-ASTELLAS-2014JP001058

PATIENT
  Age: 55 Year
  Sex: Female

DRUGS (2)
  1. PROGRAF [Suspect]
     Indication: IMMUNOSUPPRESSANT DRUG THERAPY
     Dosage: 2 MG, UNKNOWN/D
     Route: 048
  2. PREDNISOLONE [Suspect]
     Indication: IMMUNOSUPPRESSANT DRUG THERAPY
     Dosage: 5 MG, UNKNOWN/D
     Route: 065

REACTIONS (2)
  - Hypophosphataemia [Fatal]
  - Osteomalacia [Fatal]
